FAERS Safety Report 16463618 (Version 1)
Quarter: 2019Q2

REPORT INFORMATION
  Report Type: Spontaneous
  Country: US (occurrence: US)
  Receive Date: 20190621
  Receipt Date: 20190621
  Transmission Date: 20190711
  Serious: No
  Sender: FDA-Public Use
  Company Number: US-ADAMAS PHARMA, LLC-2019ADA01109

PATIENT
  Age: 83 Year
  Sex: Male

DRUGS (2)
  1. UNSPECIFIED LEVODOPA-BASED THERAPY [Concomitant]
     Dosage: UNK UNK, 1X/DAY
  2. GOCOVRI [Suspect]
     Active Substance: AMANTADINE
     Indication: DYSKINESIA
     Dosage: 137 MG, 1X/DAY AT BEDTIME
     Route: 048
     Dates: start: 20190503, end: 201905

REACTIONS (4)
  - Insomnia [Unknown]
  - Feeding disorder [Unknown]
  - Nausea [Unknown]
  - Suicidal ideation [Unknown]

NARRATIVE: CASE EVENT DATE: 201905
